FAERS Safety Report 13863077 (Version 2)
Quarter: 2017Q3

REPORT INFORMATION
  Report Type: Spontaneous
  Country: US (occurrence: US)
  Receive Date: 20170814
  Receipt Date: 20170822
  Transmission Date: 20171127
  Serious: Yes (Other)
  Sender: FDA-Public Use
  Company Number: US-AUROBINDO-AUR-APL-2017-38689

PATIENT
  Age: 55 Year
  Sex: Male

DRUGS (2)
  1. FUROSEMIDE. [Concomitant]
     Active Substance: FUROSEMIDE
     Indication: PRODUCT USED FOR UNKNOWN INDICATION
     Dosage: 20 MG, UNK
     Route: 048
  2. LISINOPRIL. [Suspect]
     Active Substance: LISINOPRIL
     Indication: PRODUCT USED FOR UNKNOWN INDICATION
     Dosage: 2.5 MG, UNK
     Route: 048

REACTIONS (8)
  - Urine output decreased [Recovered/Resolved]
  - Dyskinesia [Recovered/Resolved]
  - Jugular vein distension [Recovered/Resolved]
  - Cardiogenic shock [Unknown]
  - Peripheral coldness [Recovered/Resolved]
  - Tachycardia [Recovered/Resolved]
  - Left ventricle outflow tract obstruction [Unknown]
  - Cardiac murmur [Recovered/Resolved]
